FAERS Safety Report 21623825 (Version 1)
Quarter: 2022Q4

REPORT INFORMATION
  Report Type: Spontaneous
  Country: US (occurrence: None)
  Receive Date: 20221120
  Receipt Date: 20221120
  Transmission Date: 20230112
  Serious: Yes (Hospitalization)
  Sender: FDA-Public Use
  Company Number: None

PATIENT
  Sex: Female

DRUGS (1)
  1. TEMOZOLOMIDE [Suspect]
     Active Substance: TEMOZOLOMIDE
     Indication: Brain neoplasm malignant
     Dosage: TAKE 3 CAPSULES (300 MG) BY MOUTH DAILY ON DAYS 1-5 EVERY 28 DAYS. SWALLOW CAPSULES WHOLE WITH A ?FU
     Route: 048
     Dates: start: 20211112

REACTIONS (1)
  - Intentional dose omission [None]
